FAERS Safety Report 4461799-1 (Version None)
Quarter: 2004Q3

REPORT INFORMATION
  Report Type: 
  Country: None (occurrence: None)
  Receive Date: 20040924
  Receipt Date: 20040907
  Transmission Date: 20050211
  Serious: Yes (Hospitalization)
  Sender: FDA-Public Use
  Company Number: 2004S1000097

PATIENT
  Age: 90 Year
  Sex: Female

DRUGS (2)
  1. ACITRETIN (ACITRETIN) [Suspect]
     Indication: MYCOSIS FUNGOIDES
     Dosage: ORAL
     Route: 048
  2. ROCALTROL [Concomitant]

REACTIONS (1)
  - AGRANULOCYTOSIS [None]
